FAERS Safety Report 9438079 (Version 1)
Quarter: 2013Q3

REPORT INFORMATION
  Report Type: Spontaneous
  Country: US (occurrence: US)
  Receive Date: 20130802
  Receipt Date: 20130802
  Transmission Date: 20140515
  Serious: No
  Sender: FDA-Public Use
  Company Number: US-BRISTOL-MYERS SQUIBB COMPANY-16807455

PATIENT
  Age: 70 Year
  Sex: Male

DRUGS (2)
  1. COUMADIN [Suspect]
     Indication: HEART VALVE REPLACEMENT
  2. WARFARIN SODIUM [Suspect]
     Indication: HEART VALVE REPLACEMENT

REACTIONS (2)
  - Fatigue [Unknown]
  - Red blood cell count decreased [Unknown]
